FAERS Safety Report 9835595 (Version 1)
Quarter: 2014Q1

REPORT INFORMATION
  Report Type: Spontaneous
  Country: US (occurrence: US)
  Receive Date: 20140122
  Receipt Date: 20140122
  Transmission Date: 20141002
  Serious: Yes (Death)
  Sender: FDA-Public Use
  Company Number: US-PFIZER INC-2014015715

PATIENT
  Age: 63 Year
  Sex: Male

DRUGS (2)
  1. FLUCONAZOLE [Suspect]
     Indication: ZYGOMYCOSIS
     Dosage: UNK
  2. AMPHOTERICIN B [Suspect]
     Indication: ZYGOMYCOSIS
     Dosage: UNK

REACTIONS (1)
  - Drug ineffective [Fatal]
